FAERS Safety Report 25690647 (Version 1)
Quarter: 2025Q3

REPORT INFORMATION
  Report Type: Spontaneous
  Country: US (occurrence: None)
  Receive Date: 20250816
  Receipt Date: 20250816
  Transmission Date: 20251020
  Serious: Yes (Other)
  Sender: FDA-CTU
  Company Number: None

PATIENT
  Age: 20 Year
  Sex: Female
  Weight: 59.4 kg

DRUGS (18)
  1. RITUXAN [Suspect]
     Active Substance: RITUXIMAB
     Indication: Encephalitis autoimmune
     Route: 042
     Dates: start: 20250812
  2. acetaminophen 325mg [Concomitant]
  3. DIPHENHYDRAMINE [Concomitant]
     Active Substance: DIPHENHYDRAMINE
  4. Solu-Medrol 100mg [Concomitant]
  5. SODIUM CHLORIDE [Concomitant]
     Active Substance: SODIUM CHLORIDE
  6. Calcitrate 1900mg [Concomitant]
  7. FYCOMPA [Concomitant]
     Active Substance: PERAMPANEL
  8. LACOSAMIDE [Concomitant]
     Active Substance: LACOSAMIDE
  9. LEVETIRACETAM [Concomitant]
     Active Substance: LEVETIRACETAM
  10. MIRTAZAPINE [Concomitant]
     Active Substance: MIRTAZAPINE
  11. Onfi 20 MG [Concomitant]
  12. PANTOPRAZOLE SODIUM [Concomitant]
     Active Substance: PANTOPRAZOLE SODIUM
  13. phenytoin ER 200mg [Concomitant]
  14. PREDNISONE [Concomitant]
     Active Substance: PREDNISONE
  15. PROPRANOLOL HYDROCHLORIDE [Concomitant]
     Active Substance: PROPRANOLOL HYDROCHLORIDE
  16. sulfamethoxazole-trimethoprim 400-80mg [Concomitant]
  17. Valtoco 7.5 MG [Concomitant]
  18. vitamin D3 1.25 MG [Concomitant]

REACTIONS (4)
  - Pyrexia [None]
  - Epistaxis [None]
  - Oxygen saturation decreased [None]
  - Infusion related reaction [None]

NARRATIVE: CASE EVENT DATE: 20250815
